FAERS Safety Report 5537864-4 (Version None)
Quarter: 2007Q4

REPORT INFORMATION
  Report Type: 
  Country: None (occurrence: None)
  Receive Date: 20071207
  Receipt Date: 20071126
  Transmission Date: 20080405
  Serious: Yes (Disabling, Other)
  Sender: FDA-Public Use
  Company Number: GB-PFIZER INC-2007082915

PATIENT
  Sex: Female
  Weight: 74 kg

DRUGS (1)
  1. METHYLPREDNISOLONE ACETATE [Suspect]
     Indication: SPONDYLITIS
     Dosage: TEXT:120MG
     Route: 030

REACTIONS (2)
  - OSTEONECROSIS [None]
  - OSTEOSCLEROSIS [None]
